FAERS Safety Report 5255460-3 (Version None)
Quarter: 2007Q1

REPORT INFORMATION
  Report Type: 
  Country: None (occurrence: None)
  Receive Date: 20070305
  Receipt Date: 20070221
  Transmission Date: 20070707
  Serious: Yes (Life-Threatening, Hospitalization, Other)
  Sender: FDA-Public Use
  Company Number: HQWYE313612MAY06

PATIENT
  Sex: Female
  Weight: 43 kg

DRUGS (14)
  1. MYLOTARG [Suspect]
     Indication: ACUTE MYELOID LEUKAEMIA RECURRENT
     Route: 041
     Dates: start: 20060222, end: 20060222
  2. MYLOTARG [Suspect]
     Route: 041
     Dates: start: 20060310, end: 20060310
  3. BAKTAR [Concomitant]
     Indication: PROPHYLAXIS
     Dosage: 1DF/DAY
     Route: 048
     Dates: start: 20051017
  4. OMEPRAL [Concomitant]
     Indication: PROPHYLAXIS
     Dosage: 20 MG/DAY
     Route: 048
     Dates: start: 20060301
  5. NAUZELIN [Concomitant]
     Indication: PROPHYLAXIS
     Dosage: 30 MG/DAY
     Route: 048
     Dates: start: 20060228
  6. SAXIZON [Suspect]
     Indication: PYREXIA
     Dosage: 100 MG DOSE; DAILY FREQUENCY NOT SPECIFIED
     Route: 042
     Dates: start: 20060427, end: 20060512
  7. HEPARIN SODIUM [Concomitant]
     Dosage: 200 DF/DAY
     Route: 042
     Dates: start: 20060221, end: 20060509
  8. GATIFLOXACIN [Concomitant]
     Indication: PROPHYLAXIS
     Dosage: 400 MG/DAY
     Route: 048
     Dates: start: 20060228, end: 20060314
  9. CYTARABINE [Suspect]
     Indication: ACUTE MYELOID LEUKAEMIA RECURRENT
     Dosage: UNKNOWN
     Route: 042
     Dates: start: 20060417, end: 20060423
  10. CYTARABINE [Suspect]
     Dosage: UNKNOWN
     Route: 042
     Dates: start: 20060822, end: 20060904
  11. ETOPOSIDE [Suspect]
     Indication: ACUTE MYELOID LEUKAEMIA RECURRENT
     Dosage: UNKNOWN
     Route: 042
     Dates: start: 20060417, end: 20060423
  12. NOVANTRONE [Suspect]
     Indication: ACUTE MYELOID LEUKAEMIA RECURRENT
     Dosage: UNKNOWN
     Route: 042
     Dates: start: 20060417, end: 20060423
  13. ITRACONAZOLE [Concomitant]
     Indication: PROPHYLAXIS
     Dosage: 100 MG/DAY
     Route: 048
     Dates: start: 20051020
  14. GASTER [Concomitant]
     Indication: PROPHYLAXIS
     Dosage: 40 MG/DAY
     Route: 048
     Dates: start: 20050901, end: 20060301

REACTIONS (9)
  - ANOREXIA [None]
  - ELECTROCARDIOGRAM QT PROLONGED [None]
  - FUNGAL SEPSIS [None]
  - HYPOKALAEMIA [None]
  - PLATELET COUNT DECREASED [None]
  - SEPSIS [None]
  - STAPHYLOCOCCAL SEPSIS [None]
  - TORSADE DE POINTES [None]
  - VENTRICULAR FLUTTER [None]
